FAERS Safety Report 4394200-7 (Version None)
Quarter: 2004Q3

REPORT INFORMATION
  Report Type: 
  Country: None (occurrence: None)
  Receive Date: 20040706
  Receipt Date: 20040629
  Transmission Date: 20050211
  Serious: Yes (Other)
  Sender: FDA-Public Use
  Company Number: 2004-05-0706

PATIENT
  Age: 46 Year
  Sex: Female
  Weight: 161.0269 kg

DRUGS (13)
  1. PEG-INTRON (INTERFERON ALFA-2B) INJECTABLE POWDER [Suspect]
     Indication: HEPATITIS
     Dosage: SEE IMAGE
     Route: 058
     Dates: start: 20020531, end: 20020711
  2. PEG-INTRON (INTERFERON ALFA-2B) INJECTABLE POWDER [Suspect]
     Indication: HEPATITIS
     Dosage: SEE IMAGE
     Route: 058
     Dates: start: 20020801, end: 20030101
  3. PEG-INTRON (INTERFERON ALFA-2B) INJECTABLE POWDER [Suspect]
     Indication: HEPATITIS
     Dosage: SEE IMAGE
     Route: 058
     Dates: start: 20020531, end: 20030823
  4. PEG-INTRON (INTERFERON ALFA-2B) INJECTABLE POWDER [Suspect]
     Indication: HEPATITIS
     Dosage: SEE IMAGE
     Route: 058
     Dates: start: 20030601, end: 20030823
  5. REBETOL [Suspect]
     Indication: HEPATITIS
     Dosage: 600 MG QD ORAL
     Route: 048
     Dates: start: 20020531, end: 20020711
  6. REBETOL [Suspect]
     Indication: HEPATITIS
     Dosage: 600 MG QD ORAL
     Route: 048
     Dates: start: 20020801, end: 20030101
  7. REBETOL [Suspect]
     Indication: HEPATITIS
     Dosage: 600 MG QD ORAL
     Route: 048
     Dates: start: 20020531, end: 20030823
  8. REBETOL [Suspect]
     Indication: HEPATITIS
     Dosage: 600 MG QD ORAL
     Route: 048
     Dates: start: 20030601, end: 20030823
  9. HUMULIN [Concomitant]
  10. ATENOLOL [Concomitant]
  11. LASIX [Concomitant]
  12. DIOVAN [Concomitant]
  13. FLOVENT [Concomitant]

REACTIONS (7)
  - ARRHYTHMIA [None]
  - ARTHRALGIA [None]
  - CARDIOMEGALY [None]
  - CELLULITIS [None]
  - EAR INFECTION [None]
  - ERYTHEMA [None]
  - SWELLING [None]
